FAERS Safety Report 23774590 (Version 1)
Quarter: 2024Q2

REPORT INFORMATION
  Report Type: Spontaneous
  Country: CN (occurrence: CN)
  Receive Date: 20240423
  Receipt Date: 20240423
  Transmission Date: 20240716
  Serious: Yes (Life-Threatening)
  Sender: FDA-Public Use
  Company Number: CN-ELI_LILLY_AND_COMPANY-CN202404012155

PATIENT
  Age: 71 Year
  Sex: Male
  Weight: 49.1 kg

DRUGS (1)
  1. INSULIN LISPRO [Suspect]
     Active Substance: INSULIN LISPRO
     Indication: Diabetes mellitus
     Dosage: 10 INTERNATIONAL UNIT, TID
     Route: 058
     Dates: start: 20240411, end: 20240414

REACTIONS (1)
  - Hypoglycaemia [Recovering/Resolving]
